FAERS Safety Report 6475637-9 (Version None)
Quarter: 2009Q4

REPORT INFORMATION
  Report Type: 
  Country: None (occurrence: None)
  Receive Date: 20091204
  Receipt Date: 20091124
  Transmission Date: 20100525
  Serious: Yes (Death, Hospitalization)
  Sender: FDA-Public Use
  Company Number: ES-PFIZER INC-2006071832

PATIENT
  Age: 60 Year
  Sex: Male

DRUGS (2)
  1. SUNITINIB MALATE [Suspect]
     Indication: METASTATIC RENAL CELL CARCINOMA
     Dosage: 37.5 MG, 1X/DAY
     Route: 048
     Dates: start: 20060127, end: 20060526
  2. OMEPRAZOLE [Concomitant]
     Route: 048

REACTIONS (4)
  - ASTHENIA [None]
  - DISEASE PROGRESSION [None]
  - HYPERCALCAEMIA [None]
  - METASTATIC RENAL CELL CARCINOMA [None]
